FAERS Safety Report 5622349-7 (Version None)
Quarter: 2008Q1

REPORT INFORMATION
  Report Type: 
  Country: None (occurrence: None)
  Receive Date: 20080114
  Receipt Date: 20070726
  Transmission Date: 20080703
  Serious: Yes (Hospitalization)
  Sender: FDA-Public Use
  Company Number: A03200704888

PATIENT
  Age: 63 Year
  Sex: Male
  Weight: 88.43 kg

DRUGS (6)
  1. PLAVIX [Suspect]
     Dosage: ORAL
     Route: 048
  2. LISINOPRIL [Suspect]
     Dosage: ORAL
     Route: 048
     Dates: start: 20070701
  3. ACETYLSALICYLIC ACID SRT [Concomitant]
  4. SIMVASTATIN [Concomitant]
  5. HYDROCHLOROTHIAZIDE [Concomitant]
  6. LORATADINE [Concomitant]

REACTIONS (4)
  - ANGIOEDEMA [None]
  - INCORRECT ROUTE OF DRUG ADMINISTRATION [None]
  - PHARYNGEAL OEDEMA [None]
  - SWOLLEN TONGUE [None]
